FAERS Safety Report 5983126-0 (Version None)
Quarter: 2008Q4

REPORT INFORMATION
  Report Type: 
  Country: None (occurrence: None)
  Receive Date: 20081204
  Receipt Date: 20081204
  Transmission Date: 20090506
  Serious: Yes (Other)
  Sender: FDA-Public Use
  Company Number: None

PATIENT
  Age: 19 Year
  Sex: Male
  Weight: 70.3075 kg

DRUGS (1)
  1. ZYBAN [Suspect]
     Indication: NICOTINE DEPENDENCE
     Dosage: 150MG BID PO
     Route: 048
     Dates: start: 20081125, end: 20081129

REACTIONS (3)
  - DRY MOUTH [None]
  - FEELING JITTERY [None]
  - HYPERSENSITIVITY [None]
